FAERS Safety Report 22308119 (Version 1)
Quarter: 2023Q2

REPORT INFORMATION
  Report Type: Spontaneous
  Country: US (occurrence: None)
  Receive Date: 20230511
  Receipt Date: 20230511
  Transmission Date: 20230722
  Serious: No
  Sender: FDA-Public Use
  Company Number: US-ROCHE-3199303

PATIENT
  Sex: Female
  Weight: 70.370 kg

DRUGS (1)
  1. OCREVUS [Suspect]
     Active Substance: OCRELIZUMAB
     Indication: Multiple sclerosis relapse
     Route: 042
     Dates: start: 201706

REACTIONS (5)
  - Swelling [Recovered/Resolved]
  - Vision blurred [Recovered/Resolved]
  - CD19 lymphocyte count abnormal [Not Recovered/Not Resolved]
  - B-lymphocyte count abnormal [Not Recovered/Not Resolved]
  - T-lymphocyte count increased [Not Recovered/Not Resolved]

NARRATIVE: CASE EVENT DATE: 20170601
